FAERS Safety Report 5929601-6 (Version None)
Quarter: 2008Q3

REPORT INFORMATION
  Report Type: 
  Country: None (occurrence: None)
  Receive Date: 20080922
  Receipt Date: 20071031
  Transmission Date: 20090109
  Serious: No
  Sender: FDA-Public Use
  Company Number: T200701347

PATIENT
  Age: 26 Year
  Sex: Female
  Weight: 50.8 kg

DRUGS (4)
  1. HYDROCODONE BITARTRATE + ACETAMINOPHEN [Suspect]
     Indication: PAIN
     Dosage: 1 TABLET EVERY 4-6 HOURS, PM, ORAL
     Route: 048
     Dates: start: 20071020
  2. PROMETHAZINE [Concomitant]
  3. TRAZODONE HCL [Concomitant]
  4. XOPENEX [Concomitant]

REACTIONS (2)
  - DRUG INEFFECTIVE [None]
  - INTENTIONAL DRUG MISUSE [None]
